FAERS Safety Report 7215182-6 (Version None)
Quarter: 2011Q1

REPORT INFORMATION
  Report Type: 
  Country: None (occurrence: None)
  Receive Date: 20110107
  Receipt Date: 20101011
  Transmission Date: 20110831
  Serious: No
  Sender: FDA-Public Use
  Company Number: A0885896A

PATIENT
  Age: 76 Year
  Sex: Female

DRUGS (9)
  1. LOVAZA [Suspect]
     Dosage: 1G TWICE PER DAY
     Route: 048
     Dates: start: 20101001
  2. PLAVIX [Concomitant]
  3. METOPROLOL [Concomitant]
  4. LOPRESSOR [Concomitant]
  5. COZAAR [Concomitant]
  6. SIMVASTATIN [Concomitant]
  7. HYDROCHLOROTHIAZIDE [Concomitant]
  8. PANTOPRAZOLE [Concomitant]
  9. ASPIRIN [Concomitant]

REACTIONS (1)
  - NAUSEA [None]
